FAERS Safety Report 15338062 (Version 1)
Quarter: 2018Q3

REPORT INFORMATION
  Report Type: Spontaneous
  Country: US (occurrence: US)
  Receive Date: 20180827
  Receipt Date: 20180827
  Transmission Date: 20181010
  Serious: No
  Sender: FDA-Public Use
  Company Number: None

PATIENT
  Age: 64 Year
  Sex: Male

DRUGS (1)
  1. STIVARGA [Suspect]
     Active Substance: REGORAFENIB
     Indication: RECTAL CANCER
     Dosage: TAKE 2 TAS QD PO
     Route: 048
     Dates: start: 20180718

REACTIONS (4)
  - Arthralgia [None]
  - Diarrhoea [None]
  - Abdominal discomfort [None]
  - Therapy change [None]

NARRATIVE: CASE EVENT DATE: 20180718
